FAERS Safety Report 7950456-2 (Version None)
Quarter: 2011Q4

REPORT INFORMATION
  Report Type: 
  Country: None (occurrence: None)
  Receive Date: 20111130
  Receipt Date: 20111114
  Transmission Date: 20120403
  Serious: Yes (Hospitalization, Disabling)
  Sender: FDA-Public Use
  Company Number: RU-ROCHE-1012656

PATIENT
  Age: 44 Year
  Sex: Female

DRUGS (3)
  1. TAXOTERE [Concomitant]
     Indication: BREAST CANCER
     Route: 065
     Dates: start: 20110608, end: 20110926
  2. HERCEPTIN [Suspect]
     Indication: BREAST CANCER
     Route: 065
     Dates: start: 20110615, end: 20111024
  3. CARBOPLATIN [Concomitant]
     Indication: BREAST CANCER
     Dates: start: 20110608, end: 20110926

REACTIONS (1)
  - TOXIC NEUROPATHY [None]
